FAERS Safety Report 19963551 (Version 1)
Quarter: 2021Q4

REPORT INFORMATION
  Report Type: Spontaneous
  Country: US (occurrence: US)
  Receive Date: 20211017
  Receipt Date: 20211017
  Transmission Date: 20220303
  Serious: Yes (unspecified)
  Sender: FDA-Public Use
  Company Number: None

PATIENT
  Age: 31 Year
  Sex: Female

DRUGS (1)
  1. AFTERA [Suspect]
     Active Substance: LEVONORGESTREL
     Indication: Post coital contraception
     Dosage: ?          QUANTITY:1 TABLET(S);
     Route: 048
     Dates: start: 20210710

REACTIONS (3)
  - Alopecia [None]
  - Intermenstrual bleeding [None]
  - Menstruation irregular [None]

NARRATIVE: CASE EVENT DATE: 20210801
